FAERS Safety Report 9842430 (Version 1)
Quarter: 2014Q1

REPORT INFORMATION
  Report Type: Spontaneous
  Country: US (occurrence: US)
  Receive Date: 20140124
  Receipt Date: 20140124
  Transmission Date: 20141002
  Serious: No
  Sender: FDA-Public Use
  Company Number: US-GILEAD-2011-0038945

PATIENT
  Age: 56 Year
  Sex: Female

DRUGS (7)
  1. RANEXA [Suspect]
     Indication: ANGINA PECTORIS
     Route: 048
     Dates: start: 201012
  2. DIOVAN [Concomitant]
  3. TOPROL XL [Concomitant]
  4. PLAVIX [Concomitant]
  5. CRESTOR [Concomitant]
  6. SPIRONOLACTONE [Concomitant]
  7. ASPIRIN [Concomitant]

REACTIONS (4)
  - Oliguria [Unknown]
  - Choking [Unknown]
  - Chromaturia [Unknown]
  - Dry throat [Unknown]
